FAERS Safety Report 19191434 (Version 1)
Quarter: 2021Q2

REPORT INFORMATION
  Report Type: Spontaneous
  Country: US (occurrence: US)
  Receive Date: 20210429
  Receipt Date: 20210429
  Transmission Date: 20210717
  Serious: No
  Sender: FDA-Public Use
  Company Number: US-AKCEA THERAPEUTICS, INC.-2021IS001091

PATIENT
  Age: 66 Year
  Sex: Male

DRUGS (2)
  1. ISSD (INTEGRATED SYRINGE SAFETY DEVICE) [Suspect]
     Active Substance: DEVICE
  2. TEGSEDI [Suspect]
     Active Substance: INOTERSEN SODIUM
     Indication: HEREDITARY NEUROPATHIC AMYLOIDOSIS
     Route: 058
     Dates: end: 202101

REACTIONS (5)
  - Drug ineffective [Unknown]
  - Walking disability [Unknown]
  - Asthenia [Unknown]
  - Hereditary neuropathic amyloidosis [Unknown]
  - Bedridden [Unknown]

NARRATIVE: CASE EVENT DATE: 20210204
